FAERS Safety Report 8779845 (Version 1)
Quarter: 2012Q4

REPORT INFORMATION
  Report Type: Spontaneous
  Country: DK (occurrence: None)
  Receive Date: 20120828
  Receipt Date: 20120828
  Transmission Date: 20130627
  Serious: Yes (Disabling, Other)
  Sender: FDA-Public Use
  Company Number: 2012MA010362

PATIENT
  Sex: Female

DRUGS (3)
  1. NAPROXEN DELAYED RELEASE [Suspect]
     Dates: start: 201207, end: 20120714
  2. DICLOFENAC SODIUM EXTENDED-RELEASE [Suspect]
     Route: 061
     Dates: start: 20120714, end: 20120717
  3. OMEPRAZOLE [Concomitant]

REACTIONS (5)
  - Self-medication [None]
  - Gastritis [None]
  - Rash [None]
  - Dry mouth [None]
  - Salmonellosis [None]
